FAERS Safety Report 21104729 (Version 1)
Quarter: 2022Q3

REPORT INFORMATION
  Report Type: Spontaneous
  Country: US (occurrence: None)
  Receive Date: 20220719
  Receipt Date: 20220719
  Transmission Date: 20221027
  Serious: Yes (Life-Threatening, Hospitalization, Disabling)
  Sender: FDA-Public Use
  Company Number: None

PATIENT
  Age: 29 Year
  Sex: Female
  Weight: 90 kg

DRUGS (1)
  1. DROPERIDOL [Suspect]
     Active Substance: DROPERIDOL
     Indication: Nausea
     Dosage: OTHER FREQUENCY : ONCE;?
     Route: 042
     Dates: start: 20220518

REACTIONS (7)
  - Fear [None]
  - Restlessness [None]
  - Anxiety [None]
  - Akathisia [None]
  - Suicidal ideation [None]
  - Impaired work ability [None]
  - Loss of personal independence in daily activities [None]

NARRATIVE: CASE EVENT DATE: 20220518
